FAERS Safety Report 21333267 (Version 4)
Quarter: 2022Q4

REPORT INFORMATION
  Report Type: Report from Study
  Country: MX (occurrence: MX)
  Receive Date: 20220914
  Receipt Date: 20221201
  Transmission Date: 20230113
  Serious: Yes (Other)
  Sender: FDA-Public Use
  Company Number: MX-NOVARTISPH-NVSC2022MX201116

PATIENT
  Age: 1 Year
  Sex: Female
  Weight: 11 kg

DRUGS (4)
  1. AFINITOR [Suspect]
     Active Substance: EVEROLIMUS
     Indication: Tuberous sclerosis complex
     Dosage: 0.5 DOSAGE FORM, QD, (2.5 MG)
     Route: 048
     Dates: start: 20220819, end: 20220916
  2. AFINITOR [Suspect]
     Active Substance: EVEROLIMUS
     Dosage: 2.5 MG
     Route: 065
  3. AFINITOR [Suspect]
     Active Substance: EVEROLIMUS
     Dosage: 0.5 MG, Q48H, (INTER DAY)
     Route: 048
     Dates: start: 20220917
  4. AFINITOR [Suspect]
     Active Substance: EVEROLIMUS
     Dosage: 1.25 MG, Q24H
     Route: 048

REACTIONS (18)
  - Pharyngitis [Recovered/Resolved]
  - Oropharyngeal pain [Recovering/Resolving]
  - Oral pain [Recovered/Resolved]
  - Pyrexia [Recovered/Resolved]
  - Influenza [Not Recovered/Not Resolved]
  - Weight decreased [Recovered/Resolved]
  - Body temperature abnormal [Recovered/Resolved]
  - Body temperature increased [Unknown]
  - Decreased immune responsiveness [Unknown]
  - Respiratory tract infection [Recovered/Resolved]
  - Productive cough [Unknown]
  - Pyrexia [Recovered/Resolved]
  - Cough [Not Recovered/Not Resolved]
  - Dry mouth [Recovered/Resolved]
  - Dysphagia [Recovering/Resolving]
  - Decreased appetite [Recovered/Resolved]
  - Wrong technique in product usage process [Not Recovered/Not Resolved]
  - Inappropriate schedule of product administration [Not Recovered/Not Resolved]

NARRATIVE: CASE EVENT DATE: 20220819
